FAERS Safety Report 22179533 (Version 3)
Quarter: 2023Q2

REPORT INFORMATION
  Report Type: Spontaneous
  Country: US (occurrence: None)
  Receive Date: 20230406
  Receipt Date: 20230621
  Transmission Date: 20230721
  Serious: Yes (Other)
  Sender: FDA-Public Use
  Company Number: US-ROCHE-3323986

PATIENT
  Age: 61 Year
  Sex: Female
  Weight: 94.886 kg

DRUGS (3)
  1. XOLAIR [Suspect]
     Active Substance: OMALIZUMAB
     Indication: Chronic spontaneous urticaria
     Dosage: USES 2 PFS OF 150MG
     Route: 058
     Dates: start: 20221006
  2. XOLAIR [Suspect]
     Active Substance: OMALIZUMAB
  3. XOLAIR [Suspect]
     Active Substance: OMALIZUMAB

REACTIONS (3)
  - Injection site pain [Recovered/Resolved]
  - Product complaint [Unknown]
  - Product complaint [Unknown]

NARRATIVE: CASE EVENT DATE: 20230331
